FAERS Safety Report 9000092 (Version 1)
Quarter: 2013Q1

REPORT INFORMATION
  Report Type: Spontaneous
  Country: US (occurrence: US)
  Receive Date: 20130102
  Receipt Date: 20130102
  Transmission Date: 20140127
  Serious: Yes (Other)
  Sender: FDA-Public Use
  Company Number: US-JNJFOC-20121211744

PATIENT
  Age: 71 Year
  Sex: Male
  Weight: 145 kg

DRUGS (3)
  1. CETIRIZINE HYDROCHLORID/PSEUDOEPHEDRINE HYDROCHLORIDE [Suspect]
     Route: 065
  2. CETIRIZINE HYDROCHLORID/PSEUDOEPHEDRINE HYDROCHLORIDE [Suspect]
     Indication: NASAL CONGESTION
     Route: 065
     Dates: start: 20121203
  3. BENADRYL [Suspect]
     Indication: PRODUCT USED FOR UNKNOWN INDICATION
     Route: 065

REACTIONS (7)
  - Disorientation [Recovering/Resolving]
  - Balance disorder [Recovering/Resolving]
  - Coordination abnormal [Recovered/Resolved]
  - Gait disturbance [Recovering/Resolving]
  - Drug administered to patient of inappropriate age [Unknown]
  - Hypersomnia [Recovering/Resolving]
  - Abnormal behaviour [Unknown]
